FAERS Safety Report 15973566 (Version 2)
Quarter: 2019Q1

REPORT INFORMATION
  Report Type: Spontaneous
  Country: US (occurrence: US)
  Receive Date: 20190216
  Receipt Date: 20190222
  Transmission Date: 20190418
  Serious: No
  Sender: FDA-Public Use
  Company Number: US-009507513-1902USA006199

PATIENT

DRUGS (1)
  1. NUVARING [Suspect]
     Active Substance: ETHINYL ESTRADIOL\ETONOGESTREL
     Dosage: 1 DOSAGE FORM,  (FOR 3 WEEKS) (STRENGTH: 0.15 / 0.12)
     Route: 067

REACTIONS (2)
  - No adverse event [Unknown]
  - Incorrect product administration duration [Unknown]
